FAERS Safety Report 9913133 (Version 1)
Quarter: 2014Q1

REPORT INFORMATION
  Report Type: Spontaneous
  Country: AU (occurrence: None)
  Receive Date: 20140212
  Receipt Date: 20140212
  Transmission Date: 20141002
  Serious: Yes (Hospitalization, Disabling)
  Sender: FDA-Public Use
  Company Number: IMP_07459_2014

PATIENT
  Age: 39 Year
  Sex: Male

DRUGS (1)
  1. BACLOFEN [Suspect]
     Indication: MUSCLE SPASTICITY
     Route: 037
     Dates: start: 201101

REACTIONS (5)
  - Radiculopathy [None]
  - CSF protein increased [None]
  - CSF glucose decreased [None]
  - Aspergillus infection [None]
  - Device related infection [None]
